FAERS Safety Report 5658089-8 (Version None)
Quarter: 2008Q1

REPORT INFORMATION
  Report Type: 
  Country: None (occurrence: None)
  Receive Date: 20080310
  Receipt Date: 20061218
  Transmission Date: 20080703
  Serious: No
  Sender: FDA-Public Use
  Company Number: US-BAYER-200615036BCC

PATIENT
  Age: 42 Year
  Sex: Female
  Weight: 66 kg

DRUGS (2)
  1. ALEVE [Suspect]
     Indication: DRUG USE FOR UNKNOWN INDICATION
     Dosage: AS USED: 440 MG  UNIT DOSE: 220 MG
     Route: 048
     Dates: start: 20061217
  2. ALEVE [Suspect]
     Dosage: AS USED: 440 MG  UNIT DOSE: 220 MG
     Route: 048
     Dates: start: 20061218, end: 20061218

REACTIONS (1)
  - NAUSEA [None]
